FAERS Safety Report 5105298-2 (Version None)
Quarter: 2006Q3

REPORT INFORMATION
  Report Type: 
  Country: None (occurrence: None)
  Receive Date: 20060912
  Receipt Date: 20060828
  Transmission Date: 20061208
  Serious: Yes (Hospitalization)
  Sender: FDA-Public Use
  Company Number: 05-001010

PATIENT
  Age: 55 Year
  Sex: Male

DRUGS (4)
  1. DOVONEX [Suspect]
     Indication: PUSTULAR PSORIASIS
     Dosage: 6 G/DAY, TOPICAL
     Route: 061
     Dates: start: 20010619, end: 20010901
  2. NEORAL [Concomitant]
  3. TIGASON [Concomitant]
  4. BECLOMETHASONE DIPROPIONATE [Concomitant]

REACTIONS (6)
  - C-REACTIVE PROTEIN INCREASED [None]
  - CONDITION AGGRAVATED [None]
  - PUSTULAR PSORIASIS [None]
  - PYREXIA [None]
  - SKIN IRRITATION [None]
  - WHITE BLOOD CELL COUNT INCREASED [None]
